FAERS Safety Report 8585364-X (Version None)
Quarter: 2012Q3

REPORT INFORMATION
  Report Type: 
  Country: None (occurrence: None)
  Receive Date: 20120810
  Receipt Date: 20120730
  Transmission Date: 20120928
  Serious: Yes (Hospitalization, Other)
  Sender: FDA-Public Use
  Company Number: JP-ASTELLAS-2012US005185

PATIENT
  Sex: Male
  Weight: 55 kg

DRUGS (18)
  1. ACETAMINOPHEN [Concomitant]
     Indication: ADENOCARCINOMA PANCREAS
     Dosage: 900 MG, UID/QD
     Route: 048
     Dates: end: 20120215
  2. MAGMITT [Concomitant]
     Indication: PROPHYLAXIS
     Dosage: 2000 MG, UID/QD
     Route: 048
     Dates: end: 20120308
  3. GRANISETRON HYDROCHLORIDE [Concomitant]
     Indication: PROPHYLAXIS
     Dosage: 1 MG, UID/QD
     Route: 042
  4. LANSOPRAZOLE [Concomitant]
     Indication: PRODUCT USED FOR UNKNOWN INDICATION
     Dosage: 30 MG, UID/QD
     Route: 048
  5. OXYCONTIN [Concomitant]
     Dosage: 30 MG, UID/QD
     Route: 048
     Dates: start: 20120203, end: 20120215
  6. GEMCITABINE HYDROCHLORIDE [Suspect]
     Indication: ADENOCARCINOMA PANCREAS
     Dosage: 1000 MG/M2, WEEKLY
     Route: 041
     Dates: start: 20120202, end: 20120216
  7. OXYCONTIN [Concomitant]
     Dosage: 40 MG, UID/QD
     Route: 048
     Dates: start: 20120216, end: 20120404
  8. ACETAMINOPHEN [Concomitant]
     Dosage: 1800 MG, UID/QD
     Route: 048
     Dates: start: 20120101
  9. PANTOSIN [Concomitant]
     Indication: PROPHYLAXIS
     Dosage: 3 G, UID/QD
     Route: 048
     Dates: end: 20120308
  10. DEXAMETHASONE SODIUM PHOSPHATE [Concomitant]
     Indication: PROPHYLAXIS
     Dosage: 6.6 UNK, UNKNOWN/D
     Route: 042
  11. GEMCITABINE HYDROCHLORIDE [Suspect]
     Dosage: 1000 MG/M2, WEEKLY
     Route: 041
     Dates: start: 20120308
  12. OXYCONTIN [Concomitant]
     Indication: PRODUCT USED FOR UNKNOWN INDICATION
     Dosage: 20 MG, UID/QD
     Route: 048
     Dates: start: 20120202
  13. OXYCODONE HYDROCHLORIDE [Concomitant]
     Dosage: 10 MG, UID/QD PRN
     Route: 048
     Dates: start: 20120216
  14. FENTANYL CITRATE [Concomitant]
     Indication: ADENOCARCINOMA PANCREAS
     Dosage: 4 MG, UID/QD
     Route: 062
     Dates: start: 20120405
  15. ERLOTINIB HYDROCHLORIDE [Suspect]
     Indication: ADENOCARCINOMA PANCREAS
     Dosage: 100 MG, UID/QD
     Route: 048
     Dates: start: 20120202, end: 20120228
  16. ERLOTINIB HYDROCHLORIDE [Suspect]
     Dosage: 100 MG, UID/QD
     Route: 048
     Dates: start: 20120308
  17. OXYCODONE HYDROCHLORIDE [Concomitant]
     Indication: ADENOCARCINOMA PANCREAS
     Dosage: 5 MG, UID/QD PRN
     Route: 048
     Dates: end: 20120215
  18. PURSENNID [Concomitant]
     Indication: PROPHYLAXIS
     Dosage: 24 MG, PRN
     Route: 048
     Dates: start: 20120207, end: 20120207

REACTIONS (14)
  - HYPERGLYCAEMIA [None]
  - ANAEMIA [None]
  - ASPARTATE AMINOTRANSFERASE INCREASED [None]
  - RASH [None]
  - PYREXIA [None]
  - NEUTROPHIL COUNT DECREASED [None]
  - PLATELET COUNT DECREASED [None]
  - VOMITING [None]
  - INSOMNIA [None]
  - HAEMATURIA [None]
  - DECREASED APPETITE [None]
  - BLOOD ALKALINE PHOSPHATASE INCREASED [None]
  - WHITE BLOOD CELL COUNT DECREASED [None]
  - HYPOALBUMINAEMIA [None]
